FAERS Safety Report 16600420 (Version 1)
Quarter: 2019Q3

REPORT INFORMATION
  Report Type: Spontaneous
  Country: FR (occurrence: FR)
  Receive Date: 20190719
  Receipt Date: 20190719
  Transmission Date: 20191004
  Serious: Yes (Hospitalization)
  Sender: FDA-Public Use
  Company Number: FR-TEVA-2019-FR-1079369

PATIENT
  Age: 61 Year
  Sex: Male
  Weight: 61 kg

DRUGS (5)
  1. ERYTHROMYCINE [Suspect]
     Active Substance: ERYTHROMYCIN
     Indication: PERITONITIS
     Route: 042
     Dates: start: 20190516, end: 20190530
  2. FLUCONAZOLE. [Suspect]
     Active Substance: FLUCONAZOLE
     Indication: PERITONITIS
     Route: 042
     Dates: start: 20190502, end: 20190527
  3. SOMATOSTATINE [Suspect]
     Active Substance: SOMATOSTATIN
     Indication: PRODUCT USED FOR UNKNOWN INDICATION
     Route: 042
     Dates: start: 20190522, end: 20190601
  4. VANCOMYCINE [Suspect]
     Active Substance: VANCOMYCIN
     Indication: PERITONITIS
     Route: 042
     Dates: start: 20190520, end: 20190530
  5. TIENAM [Suspect]
     Active Substance: CILASTATIN SODIUM\IMIPENEM
     Indication: PERITONITIS
     Route: 042
     Dates: start: 20190516, end: 20190524

REACTIONS (1)
  - Rash maculo-papular [Recovering/Resolving]

NARRATIVE: CASE EVENT DATE: 20190523
